FAERS Safety Report 4444613-X (Version None)
Quarter: 2004Q3

REPORT INFORMATION
  Report Type: 
  Country: None (occurrence: None)
  Receive Date: 20040907
  Receipt Date: 20040901
  Transmission Date: 20050211
  Serious: Yes (Hospitalization)
  Sender: FDA-Public Use
  Company Number: 2004-07-0315

PATIENT
  Age: 80 Year
  Sex: Female
  Weight: 60 kg

DRUGS (7)
  1. GENTALLINE (GENTAMICIN SULFATE) INJECTABLE SOLUTION [Suspect]
     Indication: POSTOPERATIVE INFECTION
     Dosage: INTRAMUSCULAR
     Route: 030
  2. ANTIBIOTIC [Concomitant]
  3. MODURETIC 5-50 [Concomitant]
  4. FENOFIBRATE [Concomitant]
  5. PLAVIX [Concomitant]
  6. ALLOPURINOL [Concomitant]
  7. BISOPROLOL FUMARATE [Concomitant]

REACTIONS (3)
  - DEAFNESS NEUROSENSORY [None]
  - RENAL FAILURE [None]
  - VESTIBULAR DISORDER [None]
